FAERS Safety Report 16787361 (Version 11)
Quarter: 2025Q3

REPORT INFORMATION
  Report Type: Spontaneous
  Country: EU (occurrence: EU)
  Receive Date: 20190909
  Receipt Date: 20250807
  Transmission Date: 20251021
  Serious: Yes (Hospitalization, Disabling, Other)
  Sender: NOVARTIS
  Company Number: PHHY2019DE207272

PATIENT
  Age: 63 Year
  Sex: Male
  Weight: 90 kg

DRUGS (18)
  1. DIOVAN [Suspect]
     Active Substance: VALSARTAN
     Indication: Product used for unknown indication
     Dosage: 160 MG, QD
     Route: 065
  2. VALSARTAN [Suspect]
     Active Substance: VALSARTAN
     Indication: Product used for unknown indication
     Dosage: 1 DF, QD (IN MORNING)
     Route: 065
     Dates: start: 20130409
  3. VALSARTAN [Suspect]
     Active Substance: VALSARTAN
     Dosage: 1.5 DF, QD (1 IN THE MORNING AND HALF IN THE EVENING)
     Route: 065
  4. VALSARTAN [Suspect]
     Active Substance: VALSARTAN
     Indication: Product used for unknown indication
     Dosage: 160 MG, BID (MORNING AND EVENING)
     Route: 065
  5. AMLODIPINE [Concomitant]
     Active Substance: AMLODIPINE BESYLATE
     Indication: Product used for unknown indication
     Dosage: 5 MG, QD (MORNING)
     Route: 065
     Dates: start: 20111109
  6. SIMVASTATIN [Concomitant]
     Active Substance: SIMVASTATIN
     Indication: Product used for unknown indication
     Dosage: 40 MG, QD (EVENING)
     Route: 065
     Dates: end: 20080421
  7. LEVOTHYROXINE [Concomitant]
     Active Substance: LEVOTHYROXINE
     Indication: Product used for unknown indication
     Dosage: 100 MG, QD (EVENING)
     Route: 065
  8. LEVOTHYROXINE [Concomitant]
     Active Substance: LEVOTHYROXINE
     Dosage: 100 UG, QD (IN THE EVENING)
     Route: 065
  9. ONGLYZA [Concomitant]
     Active Substance: SAXAGLIPTIN HYDROCHLORIDE
     Indication: Product used for unknown indication
     Dosage: 5 MG, QD (MORNING)
     Route: 065
  10. ONGLYZA [Concomitant]
     Active Substance: SAXAGLIPTIN HYDROCHLORIDE
     Dosage: 5 MG, QD (EVENING)
     Route: 065
  11. MOXONIDINE [Concomitant]
     Active Substance: MOXONIDINE
     Indication: Product used for unknown indication
     Dosage: 0.3 MG, QD (EVENING)
     Route: 065
  12. DAPAGLIFLOZIN [Concomitant]
     Active Substance: DAPAGLIFLOZIN
     Indication: Product used for unknown indication
     Dosage: 10 MG, BID (IN THE MORNING AND EVENING)
     Route: 065
  13. RANITIDINE [Concomitant]
     Active Substance: RANITIDINE
     Indication: Product used for unknown indication
     Dosage: 150 MG, BID (IN THE MORNING AND IN THE EVENING)
     Route: 065
  14. LEVOTHYROXINE [Concomitant]
     Active Substance: LEVOTHYROXINE
     Indication: Product used for unknown indication
     Dosage: 100 UG, QD (MORNING)
     Route: 065
  15. EZETIMIBE\SIMVASTATIN [Concomitant]
     Active Substance: EZETIMIBE\SIMVASTATIN
     Indication: Product used for unknown indication
     Dosage: 1 DF, QD (10/20)
     Route: 065
  16. JANUVIA [Concomitant]
     Active Substance: SITAGLIPTIN PHOSPHATE
     Indication: Product used for unknown indication
     Dosage: 0.5 DF, BID (50/850)
     Route: 065
     Dates: start: 20111110, end: 20111118
  17. JANUVIA [Concomitant]
     Active Substance: SITAGLIPTIN PHOSPHATE
     Dosage: 1 DF, BID
     Route: 065
     Dates: start: 20111118
  18. BOOSTRIX [Concomitant]
     Active Substance: TETANUS TOXOID, REDUCED DIPHTHERIA TOXOID AND ACELLULAR PERTUSSIS VACCINE ADSORBED, TDAP
     Indication: Product used for unknown indication
     Route: 065
     Dates: start: 20150710, end: 20150710

REACTIONS (41)
  - Prostate cancer [Recovered/Resolved with Sequelae]
  - Prostate cancer recurrent [Unknown]
  - Prostate examination abnormal [Unknown]
  - Prostatic specific antigen increased [Unknown]
  - Polyuria [Unknown]
  - Prostatomegaly [Recovered/Resolved with Sequelae]
  - Anxiety [Recovering/Resolving]
  - Back pain [Unknown]
  - Arthralgia [Unknown]
  - Erectile dysfunction [Unknown]
  - Osteochondrosis [Unknown]
  - Respiratory failure [Unknown]
  - Blood pressure increased [Unknown]
  - Hypoxia [Unknown]
  - Gastritis bacterial [Unknown]
  - Abdominal discomfort [Unknown]
  - Erythema [Unknown]
  - Irritable bowel syndrome [Unknown]
  - Haemorrhoids [Unknown]
  - Osteoarthritis [Unknown]
  - Intervertebral disc degeneration [Unknown]
  - Pain [Unknown]
  - Musculoskeletal pain [Unknown]
  - Post procedural complication [Recovered/Resolved]
  - Lymphocele [Recovered/Resolved]
  - Lumbar radiculopathy [Unknown]
  - Lymphadenopathy [Recovered/Resolved]
  - Atrophy [Recovered/Resolved]
  - Wound complication [Recovered/Resolved]
  - Abnormal faeces [Unknown]
  - Skin irritation [Unknown]
  - Hyperlipidaemia [Unknown]
  - Gastrointestinal disorder [Unknown]
  - Post procedural erythema [Unknown]
  - Gamma-glutamyltransferase increased [Unknown]
  - Urogenital disorder [Unknown]
  - Flatulence [Unknown]
  - Bowel movement irregularity [Unknown]
  - Phlebolith [Unknown]
  - Renal cyst [Unknown]
  - Hernia [Unknown]

NARRATIVE: CASE EVENT DATE: 20170101
